FAERS Safety Report 12640114 (Version 2)
Quarter: 2016Q3

REPORT INFORMATION
  Report Type: Spontaneous
  Country: GB (occurrence: GB)
  Receive Date: 20160810
  Receipt Date: 20160811
  Transmission Date: 20161109
  Serious: Yes (Other)
  Sender: FDA-Public Use
  Company Number: PHFR2016GB006401

PATIENT
  Age: 31 Year
  Sex: Female

DRUGS (2)
  1. CICLOSPORIN [Suspect]
     Active Substance: CYCLOSPORINE
     Dosage: 175 MG, UNK
     Route: 065
     Dates: end: 20050316
  2. CICLOSPORIN [Suspect]
     Active Substance: CYCLOSPORINE
     Indication: PSORIASIS
     Dosage: VARIABLE
     Route: 065
     Dates: start: 20040806

REACTIONS (10)
  - Pain in extremity [Unknown]
  - Mouth ulceration [Recovering/Resolving]
  - Hand deformity [Unknown]
  - Dyspepsia [Unknown]
  - Groin pain [Unknown]
  - Upper respiratory tract infection [Unknown]
  - Psoriasis [Unknown]
  - Headache [Unknown]
  - Rash [Unknown]
  - Viral infection [Recovering/Resolving]

NARRATIVE: CASE EVENT DATE: 20041008
